FAERS Safety Report 18468184 (Version 1)
Quarter: 2020Q4

REPORT INFORMATION
  Report Type: Spontaneous
  Country: US (occurrence: US)
  Receive Date: 20201104
  Receipt Date: 20201104
  Transmission Date: 20210114
  Serious: No
  Sender: FDA-Public Use
  Company Number: None

PATIENT
  Sex: Female

DRUGS (4)
  1. METFORMIN TAB [Concomitant]
  2. CIMZIA [Suspect]
     Active Substance: CERTOLIZUMAB PEGOL
     Indication: CROHN^S DISEASE
     Route: 058
     Dates: start: 20190920
  3. PROGESTERONE CAP [Concomitant]
     Active Substance: PROGESTERONE
  4. LAMOTRIGINE TAB [Concomitant]
     Active Substance: LAMOTRIGINE

REACTIONS (4)
  - Product dose omission issue [None]
  - Memory impairment [None]
  - Pregnancy [None]
  - Exposure during pregnancy [None]
